FAERS Safety Report 4622118-0 (Version None)
Quarter: 2005Q1

REPORT INFORMATION
  Report Type: 
  Country: None (occurrence: None)
  Receive Date: 20050329
  Receipt Date: 20050317
  Transmission Date: 20050727
  Serious: Yes (Other)
  Sender: FDA-Public Use
  Company Number: 2005046180

PATIENT
  Age: 68 Year
  Sex: Female

DRUGS (1)
  1. CELEBREX [Suspect]
     Indication: OSTEOARTHRITIS
     Dosage: (100 MG), ORAL
     Route: 048

REACTIONS (3)
  - ARTHRALGIA [None]
  - CARDIAC DISORDER [None]
  - TREATMENT NONCOMPLIANCE [None]
